FAERS Safety Report 18452611 (Version 16)
Quarter: 2023Q2

REPORT INFORMATION
  Report Type: Spontaneous
  Country: US (occurrence: US)
  Receive Date: 20201102
  Receipt Date: 20230606
  Transmission Date: 20230722
  Serious: Yes (Hospitalization, Other)
  Sender: FDA-Public Use
  Company Number: US-PFIZER INC-2020415333

PATIENT
  Age: 78 Year
  Sex: Female
  Weight: 142 kg

DRUGS (3)
  1. IBRANCE [Suspect]
     Active Substance: PALBOCICLIB
     Indication: Breast cancer female
     Dosage: 125 MG, CYCLIC (125MG 1 TABLET BY MOUTH FOR 21 DAYS AND OFF FOR 7 DAYS)
     Route: 048
     Dates: start: 20170519, end: 2020
  2. IBRANCE [Suspect]
     Active Substance: PALBOCICLIB
     Dosage: 125 MG, DAILY (AS DIRECTED 21 + 12)
     Route: 048
     Dates: start: 2020
  3. IBRANCE [Suspect]
     Active Substance: PALBOCICLIB
     Dosage: ON DAYS 1-21. TAKE WHOLE WITH WATER AND FOOD, AT APPROXIMATELY THE SAME TIME EACH DAY
     Route: 048

REACTIONS (5)
  - Cellulitis [Recovering/Resolving]
  - Urinary tract infection [Unknown]
  - Dyspnoea [Unknown]
  - Product prescribing error [Unknown]
  - Confusional state [Unknown]

NARRATIVE: CASE EVENT DATE: 20200101
